FAERS Safety Report 22639929 (Version 1)
Quarter: 2023Q2

REPORT INFORMATION
  Report Type: Spontaneous
  Country: SA (occurrence: SA)
  Receive Date: 20230626
  Receipt Date: 20230626
  Transmission Date: 20230722
  Serious: Yes (Other)
  Sender: FDA-Public Use
  Company Number: SA-CELLTRION INC.-2023SA012551

PATIENT

DRUGS (9)
  1. INFLIXIMAB [Suspect]
     Active Substance: INFLIXIMAB
     Indication: Crohn^s disease
     Dosage: 5 MG/KG, NUMBER OF INJECTIONS (MEAN): 8.6
  2. AZATHIOPRINE [Concomitant]
     Active Substance: AZATHIOPRINE
  3. HYDROCORTISONE [Concomitant]
     Active Substance: HYDROCORTISONE
  4. PREDNISOLONE [Concomitant]
     Active Substance: PREDNISOLONE
  5. CEFTRIAXONE [Concomitant]
     Active Substance: CEFTRIAXONE
  6. CEFOTAXIME SODIUM [Concomitant]
     Active Substance: CEFOTAXIME SODIUM
  7. ONDANSETRON [Concomitant]
     Active Substance: ONDANSETRON
  8. CIPROFLOXACIN [Concomitant]
     Active Substance: CIPROFLOXACIN
  9. METRONIDAZOLE [Concomitant]
     Active Substance: METRONIDAZOLE

REACTIONS (4)
  - Gastrointestinal disorder [Unknown]
  - Adverse event [Unknown]
  - Diarrhoea [Unknown]
  - Drug ineffective [Unknown]
